FAERS Safety Report 7315616-2 (Version None)
Quarter: 2011Q1

REPORT INFORMATION
  Report Type: 
  Country: None (occurrence: None)
  Receive Date: 20110225
  Receipt Date: 20110222
  Transmission Date: 20110831
  Serious: Yes (Hospitalization)
  Sender: FDA-Public Use
  Company Number: TR-ABBOTT-11P-161-0707040-00

PATIENT
  Age: 55 Year
  Sex: Female
  Weight: 94 kg

DRUGS (1)
  1. HUMIRA [Suspect]
     Indication: ANKYLOSING SPONDYLITIS
     Route: 058
     Dates: start: 20080101, end: 20101101

REACTIONS (3)
  - THYROID CANCER [None]
  - NECK PAIN [None]
  - BENIGN NEOPLASM OF THYROID GLAND [None]
